FAERS Safety Report 5871324-6 (Version None)
Quarter: 2008Q3

REPORT INFORMATION
  Report Type: 
  Country: None (occurrence: None)
  Receive Date: 20080904
  Receipt Date: 20080904
  Transmission Date: 20090109
  Serious: Yes (Hospitalization)
  Sender: FDA-Public Use
  Company Number: None

PATIENT
  Age: 69 Year
  Sex: Female
  Weight: 61.6892 kg

DRUGS (2)
  1. FOSAMAX [Suspect]
     Indication: OSTEOPENIA
     Dosage: 70 MG 1 X WK ORAL
     Route: 048
     Dates: start: 20020901, end: 20070901
  2. FOSAMAX PLUS D [Suspect]
     Dosage: 70 MG + ? D 1 X WK ORAL
     Route: 048

REACTIONS (4)
  - ATRIAL FIBRILLATION [None]
  - FALL [None]
  - MYOCARDIAL INFARCTION [None]
  - SYNCOPE [None]
